FAERS Safety Report 7086758-4 (Version None)
Quarter: 2010Q4

REPORT INFORMATION
  Report Type: 
  Country: None (occurrence: None)
  Receive Date: 20101105
  Receipt Date: 20101029
  Transmission Date: 20110411
  Serious: Yes (Death)
  Sender: FDA-Public Use
  Company Number: TW-BAXTER-2010BH026199

PATIENT
  Age: 72 Year
  Sex: Male

DRUGS (4)
  1. DIANEAL [Suspect]
     Indication: PERITONEAL DIALYSIS
     Route: 033
     Dates: start: 20010901
  2. DIANEAL [Suspect]
     Route: 033
     Dates: start: 20010901
  3. DIANEAL [Suspect]
     Indication: PERITONEAL DIALYSIS
     Route: 033
     Dates: start: 20010901
  4. DIANEAL [Suspect]
     Route: 033
     Dates: start: 20010901

REACTIONS (2)
  - ARRHYTHMIA [None]
  - HYPOKALAEMIA [None]
